FAERS Safety Report 20429794 (Version 1)
Quarter: 2022Q1

REPORT INFORMATION
  Report Type: Spontaneous
  Country: BG (occurrence: BG)
  Receive Date: 20220204
  Receipt Date: 20220204
  Transmission Date: 20220424
  Serious: Yes (Other)
  Sender: FDA-Public Use
  Company Number: BG-009507513-2202BGR000413

PATIENT
  Age: 72 Year
  Sex: Male

DRUGS (5)
  1. KEYTRUDA [Suspect]
     Active Substance: PEMBROLIZUMAB
     Indication: Lung adenocarcinoma
     Dosage: 200 MILLIGRAM, EVERY 21 DAYS
     Dates: start: 20210331
  2. PEMETREXED [Suspect]
     Active Substance: PEMETREXED
     Indication: Lung adenocarcinoma
     Dosage: 500/M2, EVERY 21 DAYS
     Dates: start: 20210331
  3. CISPLATIN [Suspect]
     Active Substance: CISPLATIN
     Indication: Lung adenocarcinoma
     Dosage: 75 MILLIGRAM/SQ. METER, Q3W
     Dates: start: 20210331
  4. HYDROCHLOROTHIAZIDE\VALSARTAN [Concomitant]
     Active Substance: HYDROCHLOROTHIAZIDE\VALSARTAN
     Dosage: STRENGTH: 160/12.5
  5. METFORMIN [Concomitant]
     Active Substance: METFORMIN HYDROCHLORIDE
     Dosage: 2X 1000 MG

REACTIONS (1)
  - Thoracic vertebral fracture [Unknown]

NARRATIVE: CASE EVENT DATE: 20210701
